FAERS Safety Report 6368053-1 (Version None)
Quarter: 2009Q3

REPORT INFORMATION
  Report Type: 
  Country: None (occurrence: None)
  Receive Date: 20090922
  Receipt Date: 20090919
  Transmission Date: 20100115
  Serious: Yes (Life-Threatening)
  Sender: FDA-Public Use
  Company Number: RS-JNJFOC-20090605609

PATIENT
  Age: 29 Year
  Sex: Male

DRUGS (4)
  1. RISPOLEPT CONSTA [Suspect]
     Route: 030
  2. RISPOLEPT CONSTA [Suspect]
     Indication: SCHIZOPHRENIA
     Route: 030
  3. LAMICTAL [Suspect]
     Indication: DRUG USE FOR UNKNOWN INDICATION
     Route: 065
  4. BENSEDIN [Concomitant]
     Route: 065

REACTIONS (1)
  - SUICIDE ATTEMPT [None]
